FAERS Safety Report 4840258-8 (Version None)
Quarter: 2005Q4

REPORT INFORMATION
  Report Type: 
  Country: None (occurrence: None)
  Receive Date: 20051129
  Receipt Date: 20051109
  Transmission Date: 20060501
  Serious: Yes (Other)
  Sender: FDA-Public Use
  Company Number: FI-MERCK-0511USA01687

PATIENT

DRUGS (11)
  1. MODURETIC 5-50 [Suspect]
     Route: 048
  2. ALLOPURINOL [Suspect]
     Route: 065
  3. NIFEDIPINE [Suspect]
     Route: 065
  4. [THERAPY UNSPECIFIED] [Suspect]
     Route: 065
  5. [THERAPY UNSPECIFIED] [Suspect]
     Route: 065
  6. METHOXSALEN [Suspect]
     Route: 065
  7. TRANEXAMIC ACID [Suspect]
     Route: 065
  8. [THERAPY UNSPECIFIED] [Suspect]
     Route: 065
  9. [THERAPY UNSPECIFIED] [Suspect]
     Route: 065
  10. [THERAPY UNSPECIFIED] [Suspect]
     Route: 065
  11. [THERAPY UNSPECIFIED] [Suspect]
     Route: 065

REACTIONS (1)
  - SYSTEMIC LUPUS ERYTHEMATOSUS RASH [None]
